FAERS Safety Report 9616954 (Version 1)
Quarter: 2013Q4

REPORT INFORMATION
  Report Type: Spontaneous
  Country: US (occurrence: US)
  Receive Date: 20131011
  Receipt Date: 20131011
  Transmission Date: 20140711
  Serious: Yes (Other)
  Sender: FDA-Public Use
  Company Number: US-SA-2013SA098710

PATIENT
  Age: 56 Year
  Sex: Male
  Weight: 77.1 kg

DRUGS (10)
  1. CEREZYME [Suspect]
     Indication: GAUCHER^S DISEASE
     Dosage: DOSE:4000 UNIT(S)
     Route: 042
     Dates: start: 20091221
  2. CIPROFLOXACIN HYDROCHLORIDE [Concomitant]
  3. LOSARTAN POTASSIUM [Concomitant]
  4. NORMAL SALINE [Concomitant]
  5. WATER FOR INJECTION [Concomitant]
  6. EPIPEN [Concomitant]
  7. GEMFIBROZIL [Concomitant]
  8. SIMVASTATIN [Concomitant]
  9. FLUOXETINE HYDROCHLORIDE [Concomitant]
  10. NOVOLOG [Concomitant]
     Dosage: 100 UNIT/ML VIAL

REACTIONS (1)
  - Urinary tract infection [Unknown]
